FAERS Safety Report 22521563 (Version 1)
Quarter: 2023Q2

REPORT INFORMATION
  Report Type: Spontaneous
  Country: ZA (occurrence: ZA)
  Receive Date: 20230605
  Receipt Date: 20230605
  Transmission Date: 20230721
  Serious: Yes (Life-Threatening, Hospitalization, Other)
  Sender: FDA-Public Use
  Company Number: ZA-NAPPMUNDI-GBR-2023-0108274

PATIENT
  Age: 6 Decade
  Sex: Male

DRUGS (1)
  1. OXYCODONE HYDROCHLORIDE [Suspect]
     Active Substance: OXYCODONE HYDROCHLORIDE
     Indication: Pain
     Dosage: 5 MILLIGRAM, Q2H
     Route: 065

REACTIONS (3)
  - Overdose [Unknown]
  - Respiratory depression [Unknown]
  - Respiratory arrest [Unknown]
